APPROVED DRUG PRODUCT: ATENOLOL AND CHLORTHALIDONE
Active Ingredient: ATENOLOL; CHLORTHALIDONE
Strength: 100MG;25MG
Dosage Form/Route: TABLET;ORAL
Application: A074107 | Product #002
Applicant: PLIVA INC
Approved: Sep 24, 1997 | RLD: No | RS: No | Type: DISCN